FAERS Safety Report 5005374-9 (Version None)
Quarter: 2006Q2

REPORT INFORMATION
  Report Type: 
  Country: None (occurrence: None)
  Receive Date: 20060518
  Receipt Date: 20051122
  Transmission Date: 20061013
  Serious: Yes (Hospitalization, Disabling)
  Sender: FDA-Public Use
  Company Number: US-MERCK-0511USA03825

PATIENT
  Age: 51 Year
  Sex: Male
  Weight: 93 kg

DRUGS (3)
  1. VIOXX [Suspect]
     Indication: ARTHRALGIA
     Route: 048
     Dates: start: 19990809, end: 20030701
  2. ZESTRIL [Concomitant]
     Route: 065
  3. HYDRODIURIL [Concomitant]
     Route: 048

REACTIONS (16)
  - ANGINA UNSTABLE [None]
  - CEREBROVASCULAR ACCIDENT [None]
  - CHEST DISCOMFORT [None]
  - CORONARY ARTERY DISEASE [None]
  - DILATATION ATRIAL [None]
  - DIVERTICULAR PERFORATION [None]
  - DIVERTICULITIS [None]
  - DYSPNOEA [None]
  - FATIGUE [None]
  - HYPERLIPIDAEMIA [None]
  - LABILE HYPERTENSION [None]
  - MITRAL VALVE INCOMPETENCE [None]
  - MYOCARDIAL ISCHAEMIA [None]
  - NON-CARDIAC CHEST PAIN [None]
  - OESOPHAGEAL SPASM [None]
  - TACHYCARDIA [None]
